FAERS Safety Report 8382073-7 (Version None)
Quarter: 2012Q2

REPORT INFORMATION
  Report Type: 
  Country: None (occurrence: None)
  Receive Date: 20120524
  Receipt Date: 20120507
  Transmission Date: 20120825
  Serious: Yes (Hospitalization)
  Sender: FDA-Public Use
  Company Number: FR-JNJFOC-20120513760

PATIENT
  Sex: Female

DRUGS (9)
  1. ESCITALOPRAM [Interacting]
     Indication: PRODUCT USED FOR UNKNOWN INDICATION
     Route: 048
     Dates: start: 20070101
  2. CRESTOR [Concomitant]
     Route: 065
  3. LORAZEPAM [Concomitant]
     Route: 065
  4. CYTOMEL [Concomitant]
     Route: 065
  5. TENORMIN [Concomitant]
     Route: 065
  6. ASPIRIN [Concomitant]
     Route: 065
  7. VALSARTAN  AND HYDROCHLOROTHIAZIDE [Concomitant]
     Route: 065
  8. ALENDRONATE SODIUM [Concomitant]
     Route: 065
  9. ACETAMINOPHEN AND TRAMADOL HCL [Suspect]
     Indication: PRODUCT USED FOR UNKNOWN INDICATION
     Route: 048
     Dates: end: 20120313

REACTIONS (2)
  - CONVULSION [None]
  - DRUG INTERACTION [None]
